FAERS Safety Report 5382826-3 (Version None)
Quarter: 2007Q3

REPORT INFORMATION
  Report Type: 
  Country: None (occurrence: None)
  Receive Date: 20070710
  Receipt Date: 20070704
  Transmission Date: 20080115
  Serious: Yes (Hospitalization, Other)
  Sender: FDA-Public Use
  Company Number: CN-AVENTIS-200715777GDDC

PATIENT
  Age: 65 Year
  Sex: Male

DRUGS (2)
  1. LANTUS [Suspect]
     Indication: DIABETES MELLITUS
     Route: 058
     Dates: start: 20070513, end: 20070601
  2. OPTIPEN (INSULIN PUMP) [Suspect]

REACTIONS (3)
  - DIABETIC COMPLICATION [None]
  - HYPOGLYCAEMIC UNCONSCIOUSNESS [None]
  - PYREXIA [None]
